FAERS Safety Report 4297072-4 (Version None)
Quarter: 2004Q1

REPORT INFORMATION
  Report Type: 
  Country: None (occurrence: None)
  Receive Date: 20040126
  Receipt Date: 20030924
  Transmission Date: 20041129
  Serious: No
  Sender: FDA-Public Use
  Company Number: USA030946006

PATIENT
  Age: 10 Year
  Sex: Male
  Weight: 36 kg

DRUGS (1)
  1. STRATTERA [Suspect]
     Indication: ATTENTION DEFICIT/HYPERACTIVITY DISORDER
     Dosage: 40 MG
     Dates: start: 20030715, end: 20030801

REACTIONS (15)
  - ABDOMINAL PAIN UPPER [None]
  - CHILLS [None]
  - DECREASED APPETITE [None]
  - DYSPEPSIA [None]
  - ERYTHEMA [None]
  - FEELING ABNORMAL [None]
  - FEELING HOT [None]
  - FLUSHING [None]
  - HEADACHE [None]
  - HYPERACUSIS [None]
  - NAUSEA [None]
  - PERIPHERAL COLDNESS [None]
  - SOMNOLENCE [None]
  - TEMPERATURE INTOLERANCE [None]
  - TEMPERATURE REGULATION DISORDER [None]
